FAERS Safety Report 13158614 (Version 1)
Quarter: 2017Q1

REPORT INFORMATION
  Report Type: Spontaneous
  Country: US (occurrence: US)
  Receive Date: 20170127
  Receipt Date: 20170127
  Transmission Date: 20170428
  Serious: No
  Sender: FDA-Public Use
  Company Number: US-AKRIMAX-TIR-2016-1281

PATIENT
  Sex: Female

DRUGS (3)
  1. T4 [Concomitant]
     Active Substance: LEVOTHYROXINE
     Dosage: UNKNOWN DOSE
  2. TIROSINT [Suspect]
     Active Substance: LEVOTHYROXINE SODIUM
     Indication: HYPOTHYROIDISM
     Route: 048
  3. T4 [Concomitant]
     Active Substance: LEVOTHYROXINE
     Indication: HYPOTHYROIDISM
     Dosage: 112MCG

REACTIONS (2)
  - Malaise [Unknown]
  - Weight decreased [Unknown]
